FAERS Safety Report 6209649-7 (Version None)
Quarter: 2009Q2

REPORT INFORMATION
  Report Type: 
  Country: None (occurrence: None)
  Receive Date: 20090529
  Receipt Date: 20090529
  Transmission Date: 20091009
  Serious: Yes (Other)
  Sender: FDA-Public Use
  Company Number: None

PATIENT
  Age: 57 Year
  Sex: Female
  Weight: 158.759 kg

DRUGS (4)
  1. MORPHINE SULFATE [Suspect]
     Indication: ARTHRALGIA
     Dosage: 100 MG 1 TID PO
     Route: 048
     Dates: start: 20090225, end: 20090522
  2. MORPHINE SULFATE [Suspect]
     Indication: BACK PAIN
     Dosage: 100 MG 1 TID PO
     Route: 048
     Dates: start: 20090225, end: 20090522
  3. MORPHINE SULFATE [Suspect]
     Indication: MUSCULOSKELETAL PAIN
     Dosage: 100 MG 1 TID PO
     Route: 048
     Dates: start: 20090225, end: 20090522
  4. MORPHINE SULFATE [Suspect]
     Indication: MYALGIA
     Dosage: 30 MG 1QD PO
     Route: 048
     Dates: start: 20090225, end: 20090522

REACTIONS (4)
  - PAIN [None]
  - PRODUCT SUBSTITUTION ISSUE [None]
  - RASH [None]
  - URTICARIA [None]
